FAERS Safety Report 6885327-6 (Version None)
Quarter: 2010Q3

REPORT INFORMATION
  Report Type: 
  Country: None (occurrence: None)
  Receive Date: 20100729
  Receipt Date: 20100729
  Transmission Date: 20110219
  Serious: No
  Sender: FDA-Public Use
  Company Number: None

PATIENT
  Age: 46 Year
  Sex: Female
  Weight: 73.9363 kg

DRUGS (1)
  1. VAGICAINE CREAM MAXIMUM STRENGTH RITE AID PHARMACY [Suspect]
     Indication: PRURITUS
     Dosage: FINGERTIP AMOUNT 4 TIMES DAILY VAG
     Route: 067
     Dates: start: 20100714, end: 20100714

REACTIONS (5)
  - CHEMICAL INJURY [None]
  - PRODUCT COMPOUNDING QUALITY ISSUE [None]
  - PRODUCT PACKAGING ISSUE [None]
  - PRODUCT SUBSTITUTION ISSUE [None]
  - VULVOVAGINAL DISORDER [None]
